FAERS Safety Report 4585361-5 (Version None)
Quarter: 2005Q1

REPORT INFORMATION
  Report Type: 
  Country: None (occurrence: None)
  Receive Date: 20050217
  Receipt Date: 20050210
  Transmission Date: 20050727
  Serious: Yes (Death)
  Sender: FDA-Public Use
  Company Number: 200510516FR

PATIENT
  Age: 28 Year
  Sex: Female
  Weight: 38 kg

DRUGS (8)
  1. RIFADIN [Suspect]
     Route: 048
     Dates: start: 20041108
  2. MYAMBUTOL [Suspect]
     Route: 048
     Dates: start: 20041108
  3. RIMIFON [Suspect]
     Route: 048
     Dates: start: 20041108
  4. SUSTIVA [Suspect]
     Indication: IMMUNODEFICIENCY
     Route: 048
     Dates: start: 20041108, end: 20041130
  5. COMBIVIR [Suspect]
     Indication: IMMUNODEFICIENCY
     Route: 048
     Dates: start: 20041108, end: 20041130
  6. RETROVIR [Concomitant]
     Indication: HIV TEST POSITIVE
     Dates: start: 19990101
  7. VIRAMUNE [Concomitant]
     Indication: HIV TEST POSITIVE
     Dates: start: 19990101
  8. BACTRIM FORTE [Concomitant]
     Dates: start: 20020201

REACTIONS (8)
  - ABDOMINAL PAIN [None]
  - ANOREXIA [None]
  - ASTHENIA [None]
  - GENERAL PHYSICAL HEALTH DETERIORATION [None]
  - LACTIC ACIDOSIS [None]
  - LYMPH NODE TUBERCULOSIS [None]
  - PYREXIA [None]
  - SUDDEN DEATH [None]
